FAERS Safety Report 20244257 (Version 8)
Quarter: 2023Q4

REPORT INFORMATION
  Report Type: Spontaneous
  Country: JP (occurrence: JP)
  Receive Date: 20211229
  Receipt Date: 20231201
  Transmission Date: 20240109
  Serious: Yes (Other)
  Sender: FDA-Public Use
  Company Number: JP-ASTELLAS-2021JP025250

PATIENT
  Age: 51 Year
  Sex: Female
  Weight: 48 kg

DRUGS (5)
  1. XOSPATA [Suspect]
     Active Substance: GILTERITINIB
     Indication: Acute myeloid leukaemia
     Route: 048
     Dates: start: 20201028, end: 20210114
  2. XOSPATA [Suspect]
     Active Substance: GILTERITINIB
     Route: 048
     Dates: start: 20210303, end: 20210311
  3. XOSPATA [Suspect]
     Active Substance: GILTERITINIB
     Route: 048
     Dates: start: 20210312, end: 20210415
  4. XOSPATA [Suspect]
     Active Substance: GILTERITINIB
     Route: 048
     Dates: start: 20210422, end: 20220120
  5. XOSPATA [Suspect]
     Active Substance: GILTERITINIB
     Route: 048
     Dates: start: 20220121

REACTIONS (3)
  - Inappropriate antidiuretic hormone secretion [Unknown]
  - Liver disorder [Unknown]
  - Chronic graft versus host disease oral [Recovering/Resolving]

NARRATIVE: CASE EVENT DATE: 20210729
